FAERS Safety Report 19496889 (Version 1)
Quarter: 2021Q3

REPORT INFORMATION
  Report Type: Spontaneous
  Country: US (occurrence: US)
  Receive Date: 20210704
  Receipt Date: 20210704
  Transmission Date: 20211014
  Serious: Yes (Other)
  Sender: FDA-Public Use
  Company Number: None

PATIENT
  Age: 69 Year
  Sex: Female
  Weight: 68.85 kg

DRUGS (18)
  1. IPRATALBUT [Concomitant]
  2. MUCINES [Concomitant]
  3. ASPIRIN (LOW DOSE) [Concomitant]
  4. NEBULIZER [Concomitant]
     Active Substance: DEVICE
  5. BUPROPION. [Concomitant]
     Active Substance: BUPROPION
  6. LOVALLE [Concomitant]
  7. PROAIR HFA [Concomitant]
     Active Substance: ALBUTEROL SULFATE
  8. BUDESONIDE. [Concomitant]
     Active Substance: BUDESONIDE
  9. SINGULAIR [Concomitant]
     Active Substance: MONTELUKAST SODIUM
  10. FAMOTIDINE. [Concomitant]
     Active Substance: FAMOTIDINE
  11. AMLODIPINE [Concomitant]
     Active Substance: AMLODIPINE BESYLATE
  12. VITAMIN D [Concomitant]
     Active Substance: VITAMIN D NOS
  13. MUCINEX [Concomitant]
     Active Substance: GUAIFENESIN
  14. BUPROPION HCL SR 150 MG TABLET [Suspect]
     Active Substance: BUPROPION HYDROCHLORIDE
     Indication: DEPRESSION
     Dosage: ?          QUANTITY:1 TABLET(S);?
     Route: 048
     Dates: end: 20210501
  15. BUMETANIDE. [Concomitant]
     Active Substance: BUMETANIDE
  16. DEILNT [Concomitant]
  17. ATONOLOL [Concomitant]
  18. STOLITO [Concomitant]

REACTIONS (3)
  - Headache [None]
  - Product substitution issue [None]
  - Product odour abnormal [None]

NARRATIVE: CASE EVENT DATE: 20210514
